FAERS Safety Report 6825867-9 (Version None)
Quarter: 2010Q3

REPORT INFORMATION
  Report Type: 
  Country: None (occurrence: None)
  Receive Date: 20100709
  Receipt Date: 20100630
  Transmission Date: 20110219
  Serious: Yes (Other)
  Sender: FDA-Public Use
  Company Number: US-ELI_LILLY_AND_COMPANY-US201006008016

PATIENT
  Sex: Male

DRUGS (9)
  1. BYETTA [Suspect]
     Indication: TYPE 2 DIABETES MELLITUS
     Dosage: 5 UG, 2/D
     Route: 058
     Dates: start: 20090101
  2. METFORMIN HCL [Concomitant]
     Indication: TYPE 2 DIABETES MELLITUS
     Dosage: 500 MG, DAILY (1/D)
  3. ASPIRIN [Concomitant]
     Indication: TYPE 2 DIABETES MELLITUS
     Dosage: 81 MG, DAILY (1/D)
  4. COREG [Concomitant]
     Indication: HEART RATE INCREASED
     Dosage: 25 MG, DAILY (1/D)
  5. NEXIUM [Concomitant]
     Dosage: 40 MG, DAILY (1/D)
  6. LASIX [Concomitant]
     Dosage: 20 MG, DAILY (1/D)
  7. LIPITOR [Concomitant]
     Indication: BLOOD CHOLESTEROL
     Dosage: 40 MG, DAILY (1/D)
  8. DIOVAN [Concomitant]
     Indication: BLOOD PRESSURE
     Dosage: 1 D/F, DAILY (1/D)
  9. FLOMAX [Concomitant]
     Indication: PROSTATOMEGALY
     Dosage: 4 MG, DAILY (1/D)
     Dates: start: 20080101

REACTIONS (8)
  - ABDOMINAL PAIN [None]
  - BLOOD TRIGLYCERIDES INCREASED [None]
  - CHOLELITHIASIS [None]
  - DYSURIA [None]
  - HEPATIC ENZYME ABNORMAL [None]
  - HYPERTENSION [None]
  - POLLAKIURIA [None]
  - UMBILICAL HERNIA [None]
